FAERS Safety Report 9893943 (Version 1)
Quarter: 2014Q1

REPORT INFORMATION
  Report Type: Spontaneous
  Country: GB (occurrence: GB)
  Receive Date: 20140213
  Receipt Date: 20140213
  Transmission Date: 20141002
  Serious: Yes (Other)
  Sender: FDA-Public Use
  Company Number: GB-BAXTER-2014BAX006183

PATIENT
  Sex: Male

DRUGS (4)
  1. SODIUM CHLORIDE 0.9% INTRAVENOUS INFUSION BP [Suspect]
     Indication: B-CELL LYMPHOMA
     Route: 065
     Dates: start: 20140204, end: 20140204
  2. SODIUM CHLORIDE 0.9% INTRAVENOUS INFUSION BP [Suspect]
     Route: 065
     Dates: start: 20140205, end: 20140205
  3. RITUXIMAB [Suspect]
     Indication: B-CELL LYMPHOMA
     Route: 065
     Dates: start: 20140204, end: 20140204
  4. RITUXIMAB [Suspect]
     Route: 065
     Dates: start: 20140205, end: 20140205

REACTIONS (7)
  - Urticaria [Recovered/Resolved]
  - Vomiting [Recovered/Resolved]
  - Blood pressure decreased [Recovered/Resolved]
  - Vomiting [Recovered/Resolved]
  - Blood pressure decreased [Recovered/Resolved]
  - Feeling of body temperature change [Recovered/Resolved]
  - Restless legs syndrome [Recovered/Resolved]
